FAERS Safety Report 7772007 (Version 6)
Quarter: 2013Q3

REPORT INFORMATION
  Report Type: Report from Study
  Country: JP (occurrence: JP)
  Receive Date: 20110124
  Receipt Date: 20130906
  Transmission Date: 20140515
  Serious: Yes (Hospitalization)
  Sender: FDA-Public Use
  Company Number: JP-BRISTOL-MYERS SQUIBB COMPANY-15503683

PATIENT
  Age: 21 Year
  Sex: Male
  Weight: 75.9 kg

DRUGS (1)
  1. ABILIFY TABS [Suspect]
     Indication: SCHIZOPHRENIA
     Dosage: AT EVENING
     Route: 048
     Dates: start: 20101215, end: 20110112

REACTIONS (1)
  - Schizophrenia [Recovering/Resolving]
